FAERS Safety Report 5960334-6 (Version None)
Quarter: 2008Q4

REPORT INFORMATION
  Report Type: 
  Country: None (occurrence: None)
  Receive Date: 20081118
  Receipt Date: 20081106
  Transmission Date: 20090506
  Serious: Yes (Hospitalization)
  Sender: FDA-Public Use
  Company Number: 004900

PATIENT
  Age: 80 Year
  Sex: Male

DRUGS (3)
  1. PLETAL [Suspect]
     Indication: CEREBRAL INFARCTION
     Dosage: 100 MG, BID ORAL
     Route: 048
     Dates: start: 20080806, end: 20080810
  2. RADICUT (EDARAVONE) INJECTION [Concomitant]
  3. ARGATROBAN [Concomitant]

REACTIONS (1)
  - HAEMORRHAGIC INFARCTION [None]
